FAERS Safety Report 18351193 (Version 4)
Quarter: 2020Q4

REPORT INFORMATION
  Report Type: Report from Study
  Country: CA (occurrence: CA)
  Receive Date: 20201006
  Receipt Date: 20201117
  Transmission Date: 20210114
  Serious: No
  Sender: FDA-Public Use
  Company Number: CA-JNJFOC-20200921383

PATIENT
  Age: 60 Year
  Sex: Male

DRUGS (2)
  1. SIMPONI [Suspect]
     Active Substance: GOLIMUMAB
  2. SIMPONI [Suspect]
     Active Substance: GOLIMUMAB
     Indication: ANKYLOSING SPONDYLITIS
     Dosage: STRENGTH 50.00 MG / 0.50 ML
     Route: 058
     Dates: start: 20120124

REACTIONS (3)
  - Off label use [Unknown]
  - Needle issue [Unknown]
  - Dental caries [Unknown]

NARRATIVE: CASE EVENT DATE: 20200909
